FAERS Safety Report 5015729-4 (Version None)
Quarter: 2006Q2

REPORT INFORMATION
  Report Type: 
  Country: None (occurrence: None)
  Receive Date: 20060419
  Receipt Date: 20051103
  Transmission Date: 20061013
  Serious: Yes (Hospitalization)
  Sender: FDA-Public Use
  Company Number: 2005-04466

PATIENT
  Sex: Female

DRUGS (1)
  1. FERRLECIT [Suspect]
     Dosage: 250 MG, SINGLE, INTRAVENOUS
     Route: 042

REACTIONS (5)
  - ASTHENIA [None]
  - BLOOD PRESSURE DECREASED [None]
  - HYPERHIDROSIS [None]
  - OEDEMA PERIPHERAL [None]
  - URTICARIA [None]
